FAERS Safety Report 19287671 (Version 1)
Quarter: 2021Q2

REPORT INFORMATION
  Report Type: Report from Study
  Country: US (occurrence: US)
  Receive Date: 20210521
  Receipt Date: 20210521
  Transmission Date: 20210717
  Serious: Yes (Hospitalization, Other)
  Sender: FDA-Public Use
  Company Number: US-SHIRE-US201928446AA

PATIENT
  Sex: Female

DRUGS (4)
  1. HUMAN NORMAL IMMUNOGLOBULIN; LIQUID [Suspect]
     Active Substance: HUMAN IMMUNOGLOBULIN G
     Indication: IMMUNODEFICIENCY COMMON VARIABLE
     Dosage: 30 GRAM, EVERY 3 WK
     Route: 042
  2. BENADRYL [Suspect]
     Active Substance: DIPHENHYDRAMINE HYDROCHLORIDE
     Indication: PRODUCT USED FOR UNKNOWN INDICATION
     Dosage: UNK
     Route: 065
  3. LYRICA [Concomitant]
     Active Substance: PREGABALIN
     Indication: PRODUCT USED FOR UNKNOWN INDICATION
  4. HYQVIA [Suspect]
     Active Substance: HUMAN IMMUNOGLOBULIN G\HYALURONIDASE RECOMBINANT HUMAN
     Indication: IMMUNODEFICIENCY COMMON VARIABLE
     Dosage: UNK
     Route: 065

REACTIONS (14)
  - Infusion site thrombosis [Unknown]
  - Pudendal canal syndrome [Unknown]
  - Infusion site oedema [Unknown]
  - Cerebrospinal fluid leakage [Unknown]
  - Dysphonia [Unknown]
  - Somnolence [Unknown]
  - Weight increased [Unknown]
  - Product supply issue [Unknown]
  - Feeling abnormal [Unknown]
  - Gastrointestinal infection [Unknown]
  - Condition aggravated [Unknown]
  - Diarrhoea [Unknown]
  - Blood immunoglobulin G decreased [Unknown]
  - Product dose omission issue [Unknown]
